FAERS Safety Report 11355823 (Version 1)
Quarter: 2015Q3

REPORT INFORMATION
  Report Type: Report from Study
  Country: US (occurrence: US)
  Receive Date: 20150807
  Receipt Date: 20150807
  Transmission Date: 20151125
  Serious: No
  Sender: FDA-Public Use
  Company Number: US-ABBVIE-15P-163-1417915-00

PATIENT
  Sex: Male

DRUGS (3)
  1. RIBASPHERE [Concomitant]
     Active Substance: RIBAVIRIN
     Indication: HEPATITIS C
  2. LOSARTAN AND HYDROCHLOROTHIAZIDE [Concomitant]
     Active Substance: HYDROCHLOROTHIAZIDE\LOSARTAN POTASSIUM
     Indication: PRODUCT USED FOR UNKNOWN INDICATION
  3. VIEKIRA PAK [Suspect]
     Active Substance: DASABUVIR\OMBITASVIR\PARITAPREVIR\RITONAVIR
     Indication: HEPATITIS C
     Dosage: WEEKLY PACK 28^S
     Route: 048
     Dates: start: 201503

REACTIONS (2)
  - Vision blurred [Recovering/Resolving]
  - Anxiety [Recovering/Resolving]
